FAERS Safety Report 9630155 (Version 2)
Quarter: 2013Q4

REPORT INFORMATION
  Report Type: Spontaneous
  Country: PT (occurrence: PT)
  Receive Date: 20131017
  Receipt Date: 20131017
  Transmission Date: 20140711
  Serious: Yes (Hospitalization, Other)
  Sender: FDA-Public Use
  Company Number: PT-PFIZER INC-2012102424

PATIENT
  Age: 50 Year
  Sex: Female

DRUGS (13)
  1. ALENDRONIC ACID [Suspect]
     Indication: RHEUMATOID ARTHRITIS
     Dosage: 70 MG, WEEKLY
     Dates: start: 2003
  2. ETANERCEPT [Suspect]
     Indication: RHEUMATOID ARTHRITIS
     Dosage: UNK
     Dates: start: 200603
  3. METHOTREXATE SODIUM [Suspect]
     Indication: RHEUMATOID ARTHRITIS
     Dosage: 7.5 MG, WEEKLY
     Dates: start: 1995, end: 1997
  4. METHOTREXATE SODIUM [Suspect]
     Dosage: 7.5 MG, 1 WK
     Dates: start: 2004, end: 2006
  5. SULFASALAZINE [Suspect]
     Indication: RHEUMATOID ARTHRITIS
     Dosage: 1.5 G, 1X/DAY
  6. PREDNISOLONE [Suspect]
     Indication: RHEUMATOID ARTHRITIS
     Dosage: UNK, 1 D
  7. RITUXIMAB [Suspect]
     Indication: RHEUMATOID ARTHRITIS
     Dosage: 1000 MG,  2 WEEKS APART
     Dates: start: 200704
  8. RITUXIMAB [Suspect]
     Dosage: UNK
     Dates: start: 201003
  9. ADALIMUMAB [Suspect]
     Indication: RHEUMATOID ARTHRITIS
     Dosage: 40 MG , EVERY OTHER WEEK
     Dates: start: 200304
  10. AZATHIOPRINE [Suspect]
     Indication: RHEUMATOID ARTHRITIS
     Dosage: 100 MG, 1X/DAY
     Dates: start: 199712
  11. GOLD [Suspect]
     Indication: RHEUMATOID ARTHRITIS
     Dosage: UNK
     Dates: start: 1992, end: 199403
  12. HYDROXYCHLOROQUINE [Concomitant]
     Indication: RHEUMATOID ARTHRITIS
     Dosage: 400 MG, 1X/DAY
  13. CALCIUM WITH VITAMIN D [Concomitant]
     Indication: RHEUMATOID ARTHRITIS
     Dosage: 100 MG, 1 D

REACTIONS (15)
  - Biliary cirrhosis primary [Unknown]
  - Cholestasis [Unknown]
  - Sjogren^s syndrome [Unknown]
  - Rib fracture [Unknown]
  - Multiple fractures [Unknown]
  - Hepatic steatosis [Unknown]
  - Steatorrhoea [Unknown]
  - Wrist fracture [Unknown]
  - Chest pain [Unknown]
  - Ganglioneuroma [Unknown]
  - Mucosal inflammation [Unknown]
  - Aphthous stomatitis [Unknown]
  - Weight decreased [Unknown]
  - Nausea [Unknown]
  - Vomiting [Unknown]
